FAERS Safety Report 12317474 (Version 5)
Quarter: 2016Q3

REPORT INFORMATION
  Report Type: Spontaneous
  Country: US (occurrence: US)
  Receive Date: 20160429
  Receipt Date: 20160805
  Transmission Date: 20161109
  Serious: Yes (Hospitalization, Other)
  Sender: FDA-Public Use
  Company Number: US-PFIZER INC-2016233760

PATIENT
  Age: 70 Year
  Sex: Male

DRUGS (26)
  1. CRESTOR [Concomitant]
     Active Substance: ROSUVASTATIN CALCIUM
     Indication: BLOOD CHOLESTEROL
  2. PEPCID [Concomitant]
     Active Substance: FAMOTIDINE
     Indication: ULCER
     Dosage: 20 MG, 1X/DAY(BREAKFAST)
  3. LASIX [Concomitant]
     Active Substance: FUROSEMIDE
     Dosage: 140 MG, DAILY (80 MG IN A.M. 60 MG IN P.M.)
  4. VITAMIN B12 [Concomitant]
     Active Substance: CYANOCOBALAMIN
     Indication: VITAMIN SUPPLEMENTATION
     Dosage: 1000 UG, 1X/DAY(BREAKFAST)
     Route: 060
  5. CALCITRIOL. [Concomitant]
     Active Substance: CALCITRIOL
     Indication: VITAMIN SUPPLEMENTATION
     Dosage: UNK, ALTERNATE DAY, (0.25 AND 0.5 MCG, BREAKFAST)
  6. PROLIA [Concomitant]
     Active Substance: DENOSUMAB
     Indication: BONE DISORDER
     Dosage: UNK, (EVERY 6 MOS. BREAKFAST)
  7. BACTRIM [Concomitant]
     Active Substance: SULFAMETHOXAZOLE\TRIMETHOPRIM
     Indication: TRANSPLANT REJECTION
     Dosage: 1 DF, BEDTIME (SULFAMETHOXAZOLE 400MG, TRIMETHOPRIM 80MG, MON,WED, AND FRI. ONLY)
  8. CELEXA [Concomitant]
     Active Substance: CITALOPRAM HYDROBROMIDE
     Indication: VITAMIN SUPPLEMENTATION
     Dosage: 20 MG, 1X/DAY(BREAKFAST)
  9. PREDNISONE. [Concomitant]
     Active Substance: PREDNISONE
     Indication: TRANSPLANT REJECTION
     Dosage: 5 MG, 1X/DAY(BREAKFAST)
  10. IRON SULFATE [Concomitant]
     Active Substance: FERROUS SULFATE ANHYDROUS
     Dosage: 325 MG, 1X/DAY(BREAKFAST)
  11. COQ 10 [Concomitant]
     Active Substance: UBIDECARENONE
     Indication: VITAMIN SUPPLEMENTATION
     Dosage: 200 MG, 1X/DAY(BREAKFAST)
  12. CALCIUM +D3 [Concomitant]
     Active Substance: CALCIUM\CHOLECALCIFEROL
     Indication: VITAMIN SUPPLEMENTATION
     Dosage: 1 DF, DAILY (CALCIUM 600+ D3; 1 DAILY 2 ON M, W, F, BREAKFAST)
  13. ASPRIN [Concomitant]
     Active Substance: ASPIRIN
     Dosage: 81 MG, 1X/DAY(BREAKFAST)
  14. RENA-VITE [Concomitant]
     Active Substance: ASCORBIC ACID\BIOTIN\CALCIUM PANTOTHENATE\CYANOCOBALAMIN\FOLIC ACID\NIACINAMIDE\PYRIDOXINE HYDROCHLORIDE\RIBOFLAVIN\THIAMINE MONONITRATE
     Indication: VITAMIN SUPPLEMENTATION
     Dosage: UNK, 1X/DAY(BREAKFAST)
  15. VFEND [Suspect]
     Active Substance: VORICONAZOLE
     Indication: INFECTION
     Dosage: 200 MG, UNK
  16. SEPTRA [Concomitant]
     Active Substance: SULFAMETHOXAZOLE\TRIMETHOPRIM
     Indication: TRANSPLANT REJECTION
     Dosage: 1 DF, BEDTIME (SULFAMETHOXAZOLE 400MG, TRIMETHOPRIM 80MG, MON,WED, AND FRI. ONLY)
  17. CLONIDINE. [Concomitant]
     Active Substance: CLONIDINE
     Indication: HYPERTENSION
     Dosage: 1 MG, 1/2 IN A.M., 1 IN P.M.
  18. NOXAFIL [Concomitant]
     Active Substance: POSACONAZOLE
     Indication: ANTI-INFECTIVE THERAPY
     Dosage: 300 MG, 1X/DAY
  19. AZITHROMYCIN ANHYDROUS. [Concomitant]
     Active Substance: AZITHROMYCIN ANHYDROUS
     Indication: ANTI-INFECTIVE THERAPY
     Dosage: 250 MG, MON, WED, AND FRI. ONLY
  20. VFEND [Suspect]
     Active Substance: VORICONAZOLE
     Indication: ANTIFUNGAL TREATMENT
     Dosage: UNK
  21. TACROLIMUS. [Concomitant]
     Active Substance: TACROLIMUS
     Indication: TRANSPLANT REJECTION
     Dosage: 1 MG. (1.5 MG), 2X/DAY(BREAKFAST, BEDTIME)
  22. CRESTOR [Concomitant]
     Active Substance: ROSUVASTATIN CALCIUM
     Indication: DIABETES MELLITUS
     Dosage: 10 MG, 1X/DAY
  23. SINGULAIR [Concomitant]
     Active Substance: MONTELUKAST SODIUM
     Dosage: 10 MG, 1X/DAY (BEDTIME)
  24. FISH OIL W/OMEGA-3 FATTY ACIDS [Concomitant]
     Active Substance: FISH OIL\OMEGA-3 FATTY ACIDS
     Indication: VITAMIN SUPPLEMENTATION
     Dosage: 1000 MG, 1X/DAY(BREAKFAST)
  25. VFEND [Suspect]
     Active Substance: VORICONAZOLE
     Indication: FUNGAL INFECTION
     Dosage: 300 MG, 2X/DAY
     Dates: start: 201306, end: 201605
  26. ADVAIR HFA [Concomitant]
     Active Substance: FLUTICASONE PROPIONATE\SALMETEROL XINAFOATE
     Dosage: UNK, 2X/DAY (FLUTICASONE PROPIONATE-250, SALMETEROL XINAFOATE-50, BREAKFAST, BEDTIME)

REACTIONS (3)
  - Pulmonary mycosis [Unknown]
  - Bacterial test positive [Unknown]
  - Drug ineffective [Unknown]
